FAERS Safety Report 5133929-X (Version None)
Quarter: 2006Q4

REPORT INFORMATION
  Report Type: 
  Country: None (occurrence: None)
  Receive Date: 20061019
  Receipt Date: 20061010
  Transmission Date: 20070319
  Serious: Yes (Hospitalization)
  Sender: FDA-Public Use
  Company Number: B0442254A

PATIENT
  Age: 43 Year
  Sex: Male

DRUGS (3)
  1. LITHIUM CARBONATE [Suspect]
     Indication: BIPOLAR DISORDER
     Dosage: 400 MG/ORAL
     Route: 048
  2. CLONAZEPAM [Suspect]
     Indication: DRUG USE FOR UNKNOWN INDICATION
     Dosage: 2 MG/ ORAL
     Route: 048
  3. CLORAZEPATE MONOPOTASSIUM [Suspect]
     Indication: DRUG USE FOR UNKNOWN INDICATION
     Dosage: 10 MG/ORAL
     Route: 048

REACTIONS (6)
  - ANTIPSYCHOTIC DRUG LEVEL ABOVE THERAPEUTIC [None]
  - CONFUSIONAL STATE [None]
  - DRUG TOXICITY [None]
  - HAEMODIALYSIS [None]
  - SOMNOLENCE [None]
  - SUICIDE ATTEMPT [None]
